FAERS Safety Report 8338882-3 (Version None)
Quarter: 2012Q2

REPORT INFORMATION
  Report Type: 
  Country: None (occurrence: None)
  Receive Date: 20120506
  Receipt Date: 20120426
  Transmission Date: 20120825
  Serious: Yes (Hospitalization)
  Sender: FDA-Public Use
  Company Number: US-VERTEX PHARMACEUTICALS INC.-AE-2012-006068

PATIENT
  Sex: Male

DRUGS (3)
  1. RIBAVIRIN [Concomitant]
     Indication: HEPATITIS C
     Dates: start: 20110831
  2. PEGASYS [Concomitant]
     Indication: HEPATITIS C
     Dates: start: 20110831
  3. INCIVEK [Suspect]
     Indication: HEPATITIS C
     Dates: start: 20110831, end: 20111123

REACTIONS (11)
  - PNEUMONIA [None]
  - ANGER [None]
  - BRONCHITIS [None]
  - LIP SWELLING [None]
  - SWOLLEN TONGUE [None]
  - GINGIVAL DISORDER [None]
  - INJECTION SITE VESICLES [None]
  - IRRITABILITY [None]
  - AGGRESSION [None]
  - RASH [None]
  - IMMUNE SYSTEM DISORDER [None]
